FAERS Safety Report 15974537 (Version 2)
Quarter: 2021Q4

REPORT INFORMATION
  Report Type: Report from Study
  Country: US (occurrence: None)
  Receive Date: 20190218
  Receipt Date: 20211108
  Transmission Date: 20220303
  Serious: Yes (Death, Hospitalization)
  Sender: FDA-Public Use
  Company Number: US-ROCHE-2141765

PATIENT
  Age: 63 Year
  Sex: Male
  Weight: 47.4 kg

DRUGS (3)
  1. ATEZOLIZUMAB [Suspect]
     Active Substance: ATEZOLIZUMAB
     Indication: Colorectal cancer metastatic
     Dosage: MOST RECENT DOSE PRIOR TO SERIOUS ADVERSE EVENT (SAE) ON 15/MAY/2018
     Route: 042
     Dates: start: 20171113
  2. BEVACIZUMAB [Suspect]
     Active Substance: BEVACIZUMAB
     Indication: Colorectal cancer metastatic
     Dosage: MOST RECENT DOSE PRIOR TO SERIOUS ADVERSE EVENT (SAE) ON 15/MAY/2018
     Route: 042
     Dates: start: 20171113
  3. CAPECITABINE [Suspect]
     Active Substance: CAPECITABINE
     Indication: Colorectal cancer metastatic
     Dosage: MOST RECENT DOSE PRIOR TO SERIOUS ADVERSE EVENT (SAE) ON 28/MAY/2018.
     Route: 048
     Dates: start: 20171113

REACTIONS (5)
  - Sepsis [Not Recovered/Not Resolved]
  - Bacteroides infection [Recovered/Resolved]
  - Encephalopathy [Recovered/Resolved]
  - Dehydration [Recovered/Resolved]
  - Death [Fatal]

NARRATIVE: CASE EVENT DATE: 20180612
